FAERS Safety Report 7540355-2 (Version None)
Quarter: 2011Q2

REPORT INFORMATION
  Report Type: 
  Country: None (occurrence: None)
  Receive Date: 20110610
  Receipt Date: 20110307
  Transmission Date: 20111010
  Serious: Yes (Hospitalization)
  Sender: FDA-Public Use
  Company Number: PHHY2011FR19418

PATIENT
  Sex: Female

DRUGS (8)
  1. ZOPICLONE [Concomitant]
  2. IRBESARTAN [Interacting]
     Dosage: 75 MG, QD
     Dates: end: 20090908
  3. ATENOLOL [Suspect]
     Dosage: 50 MG, QD
     Dates: end: 20090908
  4. FUROSEMIDE [Interacting]
     Dosage: UNK
     Dates: end: 20090908
  5. NEXIUM [Concomitant]
  6. METFORMIN HCL [Suspect]
     Dosage: UNK
     Dates: end: 20090908
  7. ASPIRIN [Concomitant]
  8. VOLTAREN [Interacting]
     Dosage: UNK
     Route: 048
     Dates: end: 20090908

REACTIONS (16)
  - ASTHENIA [None]
  - DIZZINESS [None]
  - DEHYDRATION [None]
  - MUCOSAL DRYNESS [None]
  - MALAISE [None]
  - RALES [None]
  - BLOOD CREATININE INCREASED [None]
  - SKIN TURGOR DECREASED [None]
  - RENAL FAILURE ACUTE [None]
  - AMYOTROPHY [None]
  - MYOGLOBIN BLOOD INCREASED [None]
  - CARDIAC MURMUR [None]
  - ORTHOSTATIC HYPOTENSION [None]
  - BLOOD UREA INCREASED [None]
  - HYPERPROTEINAEMIA [None]
  - DISORIENTATION [None]
